FAERS Safety Report 8134632-4 (Version None)
Quarter: 2012Q1

REPORT INFORMATION
  Report Type: 
  Country: None (occurrence: None)
  Receive Date: 20120214
  Receipt Date: 20120202
  Transmission Date: 20120608
  Serious: Yes (Life-Threatening, Hospitalization)
  Sender: FDA-Public Use
  Company Number: US-SANOFI-AVENTIS-2012SA003346

PATIENT
  Age: 62 Year
  Sex: Male
  Weight: 81.6 kg

DRUGS (5)
  1. RILUTEK [Suspect]
     Route: 048
     Dates: start: 20110324, end: 20111224
  2. NAMENDA [Concomitant]
     Indication: PROPHYLAXIS
     Dates: start: 20110418, end: 20110601
  3. ALPRAZOLAM [Concomitant]
     Indication: ANXIETY
     Dosage: DOSE:0.5 NOT APPLICABLE
     Dates: start: 20111101
  4. LUNESTA [Concomitant]
     Indication: INSOMNIA
     Dates: start: 20111101
  5. COUMADIN [Concomitant]
     Dates: start: 20110601

REACTIONS (10)
  - HYPOKALAEMIA [None]
  - NEUROLEPTIC MALIGNANT SYNDROME [None]
  - BLOOD PRESSURE FLUCTUATION [None]
  - PULSE ABNORMAL [None]
  - ANGIOPATHY [None]
  - CONFUSIONAL STATE [None]
  - MUSCLE SPASMS [None]
  - MUSCLE RIGIDITY [None]
  - PYREXIA [None]
  - DYSPNOEA [None]
